FAERS Safety Report 17763540 (Version 1)
Quarter: 2020Q2

REPORT INFORMATION
  Report Type: Spontaneous
  Country: US (occurrence: US)
  Receive Date: 20200509
  Receipt Date: 20200509
  Transmission Date: 20200714
  Serious: No
  Sender: FDA-Public Use
  Company Number: US-UNITED THERAPEUTICS-UNT-2020-006825

PATIENT
  Sex: Male

DRUGS (2)
  1. REMODULIN [Suspect]
     Active Substance: TREPROSTINIL
     Indication: PULMONARY ARTERIAL HYPERTENSION
     Dosage: UNK, CONTINUING
     Route: 058
     Dates: start: 20190320
  2. REMODULIN [Suspect]
     Active Substance: TREPROSTINIL
     Dosage: 0.175 ?G/KG, CONTINUING (PUMP RATE: 0.1 ML/HR)
     Route: 058

REACTIONS (2)
  - Device programming error [Unknown]
  - Incorrect drug administration rate [Unknown]
